FAERS Safety Report 14246546 (Version 1)
Quarter: 2017Q4

REPORT INFORMATION
  Report Type: Spontaneous
  Country: US (occurrence: US)
  Receive Date: 20171201
  Receipt Date: 20171201
  Transmission Date: 20180321
  Serious: No
  Sender: FDA-Public Use
  Company Number: None

PATIENT
  Age: 38 Year
  Sex: Female
  Weight: 63 kg

DRUGS (3)
  1. TUMERIC [Concomitant]
     Active Substance: HERBALS\TURMERIC
  2. ADDERALL [Suspect]
     Active Substance: AMPHETAMINE ASPARTATE\AMPHETAMINE SULFATE\DEXTROAMPHETAMINE SACCHARATE\DEXTROAMPHETAMINE SULFATE
     Indication: ATTENTION DEFICIT/HYPERACTIVITY DISORDER
     Route: 048
     Dates: start: 20171110, end: 20171201
  3. ORGANIC RAW MULTI VITAMIN [Concomitant]

REACTIONS (5)
  - Drug ineffective [None]
  - Fatigue [None]
  - Product quality issue [None]
  - Incorrect dose administered [None]
  - Mental impairment [None]

NARRATIVE: CASE EVENT DATE: 20171111
